FAERS Safety Report 4322948-9 (Version None)
Quarter: 2004Q1

REPORT INFORMATION
  Report Type: 
  Country: None (occurrence: None)
  Receive Date: 20040322
  Receipt Date: 20040312
  Transmission Date: 20041129
  Serious: Yes (Congenital Anomaly, Other)
  Sender: FDA-Public Use
  Company Number: 2004-03-0862

PATIENT
  Age: 34 Year
  Sex: Female

DRUGS (3)
  1. CLARITIN ALLERGY 24 HT 10 MG (LORATADINE) TABLETS [Suspect]
     Indication: SEASONAL ALLERGY
     Dosage: 1 TABLET ORAL
     Route: 048
  2. ACETAMINOPHEN AND OXYCODONE HCL [Concomitant]
  3. TERBUTALINE SULFATE [Concomitant]

REACTIONS (3)
  - COMPLICATIONS OF MATERNAL EXPOSURE TO THERAPEUTIC DRUGS [None]
  - DRUG HYPERSENSITIVITY [None]
  - PREMATURE BABY [None]
